FAERS Safety Report 14958978 (Version 1)
Quarter: 2018Q2

REPORT INFORMATION
  Report Type: Spontaneous
  Country: US (occurrence: US)
  Receive Date: 20180510
  Receipt Date: 20180510
  Transmission Date: 20180711
  Serious: Yes (Other)
  Sender: FDA-Public Use
  Company Number: None

PATIENT
  Age: 59 Year
  Sex: Female

DRUGS (3)
  1. GABAPENTIN. [Concomitant]
     Active Substance: GABAPENTIN
     Dates: start: 20150924
  2. DULOXETINE. [Suspect]
     Active Substance: DULOXETINE
     Indication: MAJOR DEPRESSION
     Route: 048
     Dates: start: 20180208, end: 20180308
  3. NALTREXONE [Concomitant]
     Active Substance: NALTREXONE
     Dates: start: 20171201

REACTIONS (16)
  - Confusional state [None]
  - Vomiting [None]
  - Aphasia [None]
  - Withdrawal syndrome [None]
  - Nausea [None]
  - Musculoskeletal discomfort [None]
  - Hyperhidrosis [None]
  - Nightmare [None]
  - Vision blurred [None]
  - Dysstasia [None]
  - Headache [None]
  - Dizziness [None]
  - Gait disturbance [None]
  - Constipation [None]
  - Paraesthesia [None]
  - Chills [None]
